FAERS Safety Report 4484334-0 (Version None)
Quarter: 2004Q4

REPORT INFORMATION
  Report Type: 
  Country: None (occurrence: None)
  Receive Date: 20041021
  Receipt Date: 20041006
  Transmission Date: 20050328
  Serious: Yes (Death)
  Sender: FDA-Public Use
  Company Number: 2004AL000842

PATIENT
  Age: 3 Year
  Sex: Female

DRUGS (3)
  1. IBUPROFEN [Suspect]
     Dosage: PO
     Route: 048
  2. IBUPROFEN [Suspect]
     Dosage: PO
     Route: 048
  3. CHLORPHENIRAMINE/HYDROCODONE [Suspect]
     Dosage: PO
     Route: 048

REACTIONS (10)
  - BLOOD BICARBONATE DECREASED [None]
  - BLOOD PH DECREASED [None]
  - BRAIN DEATH [None]
  - BRAIN HERNIATION [None]
  - BRAIN STEM INFARCTION [None]
  - CEREBRAL INFARCTION [None]
  - COMA [None]
  - CYANOSIS [None]
  - HEART RATE INCREASED [None]
  - MULTIPLE DRUG OVERDOSE [None]
